FAERS Safety Report 17802144 (Version 3)
Quarter: 2020Q2

REPORT INFORMATION
  Report Type: Spontaneous
  Country: US (occurrence: US)
  Receive Date: 20200519
  Receipt Date: 20200629
  Transmission Date: 20200714
  Serious: Yes (Other)
  Sender: FDA-Public Use
  Company Number: US-PFIZER INC-2020197752

PATIENT
  Age: 65 Year

DRUGS (1)
  1. XANAX [Suspect]
     Active Substance: ALPRAZOLAM
     Dosage: UNK

REACTIONS (4)
  - Malignant melanoma [Unknown]
  - Immune system disorder [Unknown]
  - Anxiety [Unknown]
  - Sleep apnoea syndrome [Unknown]
